FAERS Safety Report 7527302-4 (Version None)
Quarter: 2011Q2

REPORT INFORMATION
  Report Type: 
  Country: None (occurrence: None)
  Receive Date: 20110607
  Receipt Date: 20110120
  Transmission Date: 20111010
  Serious: Yes (Hospitalization)
  Sender: FDA-Public Use
  Company Number: US-BAYER-201015455NA

PATIENT
  Sex: Female
  Weight: 99.773 kg

DRUGS (3)
  1. YAZ [Suspect]
     Route: 048
     Dates: start: 20070301
  2. DROSPIRENONE AND ETHINYL ESTRADIOL [Suspect]
     Dosage: UNK
     Dates: start: 20040101, end: 20090101
  3. YASMIN [Suspect]
     Dosage: UNK
     Route: 048
     Dates: start: 20040101, end: 20090101

REACTIONS (4)
  - THROMBOSIS [None]
  - CHOLECYSTITIS ACUTE [None]
  - CHOLECYSTECTOMY [None]
  - CHOLELITHIASIS [None]
